FAERS Safety Report 9192728 (Version 2)
Quarter: 2013Q2

REPORT INFORMATION
  Report Type: Spontaneous
  Country: US (occurrence: US)
  Receive Date: 20130327
  Receipt Date: 20130627
  Transmission Date: 20140414
  Serious: No
  Sender: FDA-Public Use
  Company Number: US-009507513-1303USA013217

PATIENT
  Age: 62 Year
  Sex: Male
  Weight: 80.73 kg

DRUGS (2)
  1. MIRALAX [Suspect]
     Indication: CONSTIPATION
     Dosage: UNK, BIW
     Route: 048
     Dates: start: 201304, end: 201305
  2. MIRALAX [Suspect]
     Indication: MEDICAL OBSERVATION

REACTIONS (4)
  - Genital burning sensation [Recovered/Resolved]
  - Proctalgia [Recovered/Resolved]
  - Penile pain [Recovered/Resolved]
  - Abdominal discomfort [Recovered/Resolved]
